FAERS Safety Report 8995350 (Version 1)
Quarter: 2013Q1

REPORT INFORMATION
  Report Type: Spontaneous
  Country: US (occurrence: US)
  Receive Date: 20130103
  Receipt Date: 20130103
  Transmission Date: 20140127
  Serious: No
  Sender: FDA-Public Use
  Company Number: US-ABBOTT-12P-163-0926931-00

PATIENT
  Age: 67 Year
  Sex: Female
  Weight: 78.09 kg

DRUGS (5)
  1. CALCIUM [Concomitant]
     Indication: PRODUCT USED FOR UNKNOWN INDICATION
  2. SYNTHROID [Suspect]
     Indication: HYPOTHYROIDISM
     Dates: start: 201203
  3. SYNTHROID [Suspect]
     Dates: end: 201203
  4. LEVOTHYROXINE [Suspect]
     Indication: HYPOTHYROIDISM
  5. LEVOTHYROXINE [Suspect]

REACTIONS (3)
  - Chest discomfort [Not Recovered/Not Resolved]
  - Pruritus [Not Recovered/Not Resolved]
  - Cough [Not Recovered/Not Resolved]
